FAERS Safety Report 7275090-1 (Version None)
Quarter: 2011Q1

REPORT INFORMATION
  Report Type: 
  Country: None (occurrence: None)
  Receive Date: 20110204
  Receipt Date: 20110124
  Transmission Date: 20110831
  Serious: Yes (Hospitalization, Other)
  Sender: FDA-Public Use
  Company Number: PHEH2006US12371

PATIENT
  Sex: Female
  Weight: 69.841 kg

DRUGS (15)
  1. BISPHOSPHONATES [Concomitant]
  2. AREDIA [Suspect]
     Indication: BONE DENSITY DECREASED
  3. TAXOL [Concomitant]
  4. AMARYL [Concomitant]
  5. HEMOCYTE TABLET [Concomitant]
  6. TAXOTERE [Concomitant]
  7. GLIMEPIRIDE [Concomitant]
  8. ALTACE [Concomitant]
  9. CARBOPLATIN [Concomitant]
  10. NIFEDIPINE [Concomitant]
  11. GEMCAL [Concomitant]
  12. NAVELBINE [Concomitant]
  13. SYNTHROID [Concomitant]
  14. MULTI-VITAMINS [Concomitant]
  15. AVASTIN [Concomitant]

REACTIONS (56)
  - PRIMARY SEQUESTRUM [None]
  - ARTHRALGIA [None]
  - MENTAL STATUS CHANGES [None]
  - CARDIAC FAILURE CONGESTIVE [None]
  - DEHYDRATION [None]
  - PNEUMONIA [None]
  - DIZZINESS [None]
  - HEART RATE INCREASED [None]
  - STRESS URINARY INCONTINENCE [None]
  - GAIT DISTURBANCE [None]
  - MASTOID DISORDER [None]
  - DEVICE RELATED INFECTION [None]
  - SINUS BRADYCARDIA [None]
  - CONJUNCTIVITIS [None]
  - BLOOD UREA INCREASED [None]
  - ATAXIA [None]
  - CEREBRAL ISCHAEMIA [None]
  - DYSPNOEA [None]
  - PARAPLEGIA [None]
  - OSTEONECROSIS OF JAW [None]
  - BLOOD PRESSURE INCREASED [None]
  - NECK PAIN [None]
  - BLOOD GLUCOSE INCREASED [None]
  - RASH [None]
  - DIARRHOEA [None]
  - METASTATIC NEOPLASM [None]
  - NAUSEA [None]
  - PATHOLOGICAL FRACTURE [None]
  - VOMITING [None]
  - ANXIETY [None]
  - OSTEOLYSIS [None]
  - DIABETES MELLITUS [None]
  - METASTASES TO SPINE [None]
  - SLEEP APNOEA SYNDROME [None]
  - OEDEMA PERIPHERAL [None]
  - INJURY [None]
  - FACIAL PAIN [None]
  - METASTASES TO BONE [None]
  - ACUTE RESPIRATORY FAILURE [None]
  - OSTEOMYELITIS [None]
  - ANION GAP INCREASED [None]
  - BLOOD ALKALINE PHOSPHATASE INCREASED [None]
  - FALL [None]
  - CHEST PAIN [None]
  - HYPOKALAEMIA [None]
  - DYSPHAGIA [None]
  - PULMONARY EMBOLISM [None]
  - PAIN [None]
  - PHYSICAL DISABILITY [None]
  - MICTURITION URGENCY [None]
  - BACK PAIN [None]
  - SPINAL CORD COMPRESSION [None]
  - FLANK PAIN [None]
  - CEREBRAL ATROPHY [None]
  - RENAL FAILURE ACUTE [None]
  - NEUROPATHY PERIPHERAL [None]
